FAERS Safety Report 10037285 (Version 1)
Quarter: 2014Q1

REPORT INFORMATION
  Report Type: Spontaneous
  Country: FR (occurrence: None)
  Receive Date: 20140324
  Receipt Date: 20140324
  Transmission Date: 20141002
  Serious: Yes (Death, Hospitalization)
  Sender: FDA-Public Use
  Company Number: B0977217A

PATIENT
  Age: 22 Year
  Sex: Female

DRUGS (5)
  1. VALACICLOVIR (VALACICLOVIR HYDROCHLORIDE) [Suspect]
     Indication: LYMPHOPROLIFERATIVE DISORDER
  2. CARBAMAZEPINE (CARBAMAZEPINE) [Suspect]
     Indication: LYMPHOPROLIFERATIVE DISORDER
  3. CO-TRIMOXAZOLE [Suspect]
     Indication: LYMPHOPROLIFERATIVE DISORDER
  4. SIROLIMUS [Suspect]
     Indication: LYMPHOPROLIFERATIVE DISORDER
  5. PREDNISONE [Suspect]
     Indication: LYMPHOPROLIFERATIVE DISORDER

REACTIONS (1)
  - Drug-induced liver injury [None]
